FAERS Safety Report 19710480 (Version 4)
Quarter: 2021Q3

REPORT INFORMATION
  Report Type: Report from Study
  Country: US (occurrence: US)
  Receive Date: 20210816
  Receipt Date: 20210928
  Transmission Date: 20211014
  Serious: Yes (Hospitalization)
  Sender: FDA-Public Use
  Company Number: US-PFIZER INC-2021773337

PATIENT
  Age: 55 Year
  Sex: Female

DRUGS (3)
  1. IBRANCE [Suspect]
     Active Substance: PALBOCICLIB
     Indication: BREAST CANCER METASTATIC
     Dosage: 125 MG, CYCLIC (DAILY, 3WEEKS ON THEN 1 WEEK OFF)
     Route: 048
     Dates: start: 20210619
  2. IBRANCE [Suspect]
     Active Substance: PALBOCICLIB
     Dosage: 100 MG, CYCLIC (DAILY 21 DAYS ON, 7 DAYS OFF)
     Route: 048
     Dates: start: 20210619, end: 20210831
  3. LETROZOLE. [Concomitant]
     Active Substance: LETROZOLE
     Dosage: UNK, DAILY
     Route: 048

REACTIONS (18)
  - Vulvovaginal pruritus [Unknown]
  - Memory impairment [Unknown]
  - Dysphonia [Unknown]
  - Alopecia [Unknown]
  - Condition aggravated [Unknown]
  - Skin discolouration [Unknown]
  - Nausea [Unknown]
  - Pruritus [Unknown]
  - Rash [Recovered/Resolved]
  - Diarrhoea [Unknown]
  - Back pain [Unknown]
  - Product dose omission issue [Unknown]
  - Enteritis [Recovering/Resolving]
  - Inappropriate schedule of product administration [Unknown]
  - Colitis [Recovering/Resolving]
  - White blood cell count decreased [Recovering/Resolving]
  - Illness [Unknown]
  - Acne [Unknown]

NARRATIVE: CASE EVENT DATE: 2021
